FAERS Safety Report 22060976 (Version 4)
Quarter: 2023Q2

REPORT INFORMATION
  Report Type: Spontaneous
  Country: US (occurrence: US)
  Receive Date: 20230303
  Receipt Date: 20230411
  Transmission Date: 20230722
  Serious: No
  Sender: FDA-Public Use
  Company Number: US-PFIZER INC-PV202200106429

PATIENT
  Age: 68 Year
  Sex: Female
  Weight: 86.168 kg

DRUGS (1)
  1. CIBINQO [Suspect]
     Active Substance: ABROCITINIB
     Indication: Psoriasis
     Dosage: 100 MG, 1X/DAY
     Route: 048
     Dates: start: 20221011, end: 202211

REACTIONS (2)
  - Back pain [Unknown]
  - Off label use [Unknown]

NARRATIVE: CASE EVENT DATE: 20221011
